FAERS Safety Report 14382253 (Version 1)
Quarter: 2018Q1

REPORT INFORMATION
  Report Type: Spontaneous
  Country: US (occurrence: US)
  Receive Date: 20180112
  Receipt Date: 20180112
  Transmission Date: 20180509
  Serious: No
  Sender: FDA-Public Use
  Company Number: US-MYLANLABS-2017M1080226

PATIENT
  Sex: Female

DRUGS (1)
  1. ETOPOSIDE CAPSULES, USP [Suspect]
     Active Substance: ETOPOSIDE
     Indication: PRODUCT USED FOR UNKNOWN INDICATION
     Dosage: 50 MG, UNK

REACTIONS (4)
  - Vomiting [Unknown]
  - Fatigue [Unknown]
  - Red blood cell count decreased [Unknown]
  - Nausea [Unknown]
